FAERS Safety Report 25832593 (Version 1)
Quarter: 2025Q3

REPORT INFORMATION
  Report Type: Spontaneous
  Country: US (occurrence: None)
  Receive Date: 20250922
  Receipt Date: 20250922
  Transmission Date: 20251021
  Serious: No
  Sender: FDA-CTU
  Company Number: None

PATIENT
  Sex: Female

DRUGS (1)
  1. ADALIMUMAB-AACF [Suspect]
     Active Substance: ADALIMUMAB-AACF
     Indication: Psoriatic arthropathy
     Dosage: OTHER FREQUENCY : EVERY 14 DAYS;?
     Route: 058
     Dates: start: 20250508

REACTIONS (2)
  - Therapy cessation [None]
  - Psoriatic arthropathy [None]
